FAERS Safety Report 19221376 (Version 3)
Quarter: 2021Q3

REPORT INFORMATION
  Report Type: Report from Study
  Country: CR (occurrence: CR)
  Receive Date: 20210505
  Receipt Date: 20210804
  Transmission Date: 20211014
  Serious: Yes (Hospitalization)
  Sender: FDA-Public Use
  Company Number: PHHY2019CR191012

PATIENT
  Age: 63 Year
  Sex: Female

DRUGS (2)
  1. SCAPHO [Suspect]
     Active Substance: SECUKINUMAB
     Indication: PSORIATIC ARTHROPATHY
     Dosage: 150 MG, UNK (VIAL)
     Route: 065
     Dates: start: 20181101
  2. SCAPHO [Suspect]
     Active Substance: SECUKINUMAB
     Dosage: 150 MG, QMO (BENEATH THE SKIN, USUALLY VIA INJECTION)
     Route: 058
     Dates: start: 20181126

REACTIONS (7)
  - Back pain [Not Recovered/Not Resolved]
  - Cough [Unknown]
  - COVID-19 [Recovering/Resolving]
  - Snoring [Unknown]
  - Nasopharyngitis [Unknown]
  - Influenza [Unknown]
  - Fatigue [Unknown]
